FAERS Safety Report 17501163 (Version 3)
Quarter: 2020Q2

REPORT INFORMATION
  Report Type: Report from Study
  Country: US (occurrence: US)
  Receive Date: 20200305
  Receipt Date: 20200522
  Transmission Date: 20200713
  Serious: Yes (Hospitalization, Other)
  Sender: FDA-Public Use
  Company Number: US-GLAXOSMITHKLINE-US2020AMR037722

PATIENT
  Age: 69 Year
  Sex: Female

DRUGS (1)
  1. NIRAPARIB [Suspect]
     Active Substance: NIRAPARIB
     Indication: OVARIAN CANCER
     Dosage: 200 MG, QD

REACTIONS (8)
  - Intestinal obstruction [Unknown]
  - Hepatic enzyme increased [Unknown]
  - Off label use [Unknown]
  - Asthenia [Unknown]
  - Decreased appetite [Unknown]
  - Dry mouth [Unknown]
  - Taste disorder [Unknown]
  - Dehydration [Unknown]
